FAERS Safety Report 6985505-1 (Version None)
Quarter: 2010Q3

REPORT INFORMATION
  Report Type: 
  Country: None (occurrence: None)
  Receive Date: 20100915
  Receipt Date: 20100907
  Transmission Date: 20110219
  Serious: Yes (Hospitalization)
  Sender: FDA-Public Use
  Company Number: B0674494A

PATIENT
  Sex: Female
  Weight: 65 kg

DRUGS (12)
  1. MELPHALAN HYDROCHLORIDE [Suspect]
     Indication: MULTIPLE MYELOMA
     Dosage: 12MG PER DAY
     Route: 048
     Dates: start: 20090630
  2. THALIDOMIDE [Suspect]
     Indication: MULTIPLE MYELOMA
     Dosage: 100MG PER DAY
     Route: 048
     Dates: start: 20090630
  3. PREDNISONE [Suspect]
     Indication: MULTIPLE MYELOMA
     Dosage: 125MG PER DAY
     Route: 048
     Dates: start: 20090630
  4. ESOMEPRAZOLE MAGNESIUM [Concomitant]
     Indication: PROPHYLAXIS
     Dosage: 40MG TWICE PER DAY
     Route: 048
  5. METFORMIN [Concomitant]
     Indication: DIABETES MELLITUS
     Dosage: 2000MG TWICE PER DAY
     Route: 048
     Dates: start: 19970101
  6. LISINOPRIL [Concomitant]
     Indication: HYPERTENSION
     Route: 048
     Dates: start: 20080101
  7. ASPIRINE [Concomitant]
     Indication: THROMBOSIS PROPHYLAXIS
     Dosage: 100MG PER DAY
     Route: 048
     Dates: start: 20090311
  8. ZOLEDRONIC ACID [Concomitant]
     Dosage: .1333MG MONTHLY
     Route: 042
     Dates: start: 20100125
  9. TRAMADOL [Concomitant]
     Indication: BONE PAIN
     Dosage: 112.5MG THREE TIMES PER DAY
     Route: 048
     Dates: start: 20090618
  10. ACETAMINOPHEN [Concomitant]
     Indication: BONE PAIN
     Dosage: 975MG THREE TIMES PER DAY
     Route: 048
     Dates: start: 20090618
  11. EPOETIN ALFA [Concomitant]
     Dosage: 21.4286UG WEEKLY
     Route: 042
     Dates: start: 20100811
  12. HYDROCHLOROTHIAZIDE [Concomitant]
     Indication: HYPERTENSION
     Route: 048
     Dates: start: 20080101

REACTIONS (1)
  - RENAL FAILURE ACUTE [None]
